FAERS Safety Report 17236871 (Version 3)
Quarter: 2021Q4

REPORT INFORMATION
  Report Type: Spontaneous
  Country: JP (occurrence: JP)
  Receive Date: 20200106
  Receipt Date: 20211027
  Transmission Date: 20220303
  Serious: Yes (Hospitalization, Other)
  Sender: FDA-Public Use
  Company Number: JP-MH-2019M1132776AA

PATIENT
  Age: 7 Decade
  Sex: Female
  Weight: 44.4 kg

DRUGS (35)
  1. PREDNISOLONE [Suspect]
     Active Substance: PREDNISOLONE
     Indication: Acute lymphocytic leukaemia recurrent
     Dosage: 80 MILLIGRAM, QD
     Route: 048
     Dates: start: 20180910, end: 2018
  2. PREDNISOLONE [Suspect]
     Active Substance: PREDNISOLONE
     Dosage: REDUCED DOSE
     Route: 048
     Dates: start: 2018, end: 20181007
  3. BESPONSA [Suspect]
     Active Substance: INOTUZUMAB OZOGAMICIN
     Indication: Acute lymphocytic leukaemia recurrent
     Dosage: 0.8 MILLIGRAM
     Route: 041
     Dates: start: 20180918, end: 20180918
  4. BESPONSA [Suspect]
     Active Substance: INOTUZUMAB OZOGAMICIN
     Dosage: 0.5 MILLIGRAM/SQ. METER, QW
     Route: 041
     Dates: start: 20180925, end: 20181002
  5. BESPONSA [Suspect]
     Active Substance: INOTUZUMAB OZOGAMICIN
     Dosage: 0.5 MILLIGRAM
     Route: 041
     Dates: start: 20181024, end: 20181107
  6. BESPONSA [Suspect]
     Active Substance: INOTUZUMAB OZOGAMICIN
     Dosage: 0.5 MILLIGRAM
     Route: 041
     Dates: start: 20190110, end: 20190124
  7. BESPONSA [Suspect]
     Active Substance: INOTUZUMAB OZOGAMICIN
     Dosage: 0.5 MILLIGRAM/SQ. METER, QW
     Route: 041
     Dates: start: 20190513, end: 20190527
  8. DEXAMETHASONE [Suspect]
     Active Substance: DEXAMETHASONE
     Indication: Acute lymphocytic leukaemia recurrent
     Dosage: 16.5 MILLIGRAM, QD
     Route: 041
     Dates: start: 20180907, end: 20180909
  9. CARBOCYSTEINE [Concomitant]
     Active Substance: CARBOCYSTEINE
     Indication: Product used for unknown indication
     Dosage: UNK
     Route: 048
  10. EPRAZINONE HYDROCHLORIDE [Concomitant]
     Active Substance: EPRAZINONE HYDROCHLORIDE
     Indication: Cough
     Dosage: UNK
     Route: 048
  11. EPRAZINONE HYDROCHLORIDE [Concomitant]
     Active Substance: EPRAZINONE HYDROCHLORIDE
     Indication: Productive cough
  12. TENOFOVIR [Concomitant]
     Active Substance: TENOFOVIR
     Indication: Hepatitis B reactivation
     Dosage: UNK
     Route: 048
  13. BISOPROLOL FUMARATE [Concomitant]
     Active Substance: BISOPROLOL FUMARATE
     Indication: Cardioplegia
     Dosage: UNK
     Route: 048
  14. ENALAPRIL [Concomitant]
     Active Substance: ENALAPRIL
     Indication: Cardioplegia
     Dosage: UNK
     Route: 048
  15. IRSOGLADINE MALEATE [Concomitant]
     Active Substance: IRSOGLADINE MALEATE
     Indication: Product used for unknown indication
     Dosage: UNK
     Route: 048
  16. ROSUVASTATIN [Concomitant]
     Active Substance: ROSUVASTATIN
     Indication: Hyperlipidaemia
     Dosage: UNK
     Route: 048
  17. CHOLECALCIFEROL [Concomitant]
     Active Substance: CHOLECALCIFEROL
     Indication: Osteoporosis
     Dosage: UNK
     Route: 048
  18. FEXOFENADINE [Concomitant]
     Active Substance: FEXOFENADINE HYDROCHLORIDE
     Indication: Asthma
     Dosage: UNK
     Route: 048
  19. FLUTICASONE FUROATE\VILANTEROL TRIFENATATE [Concomitant]
     Active Substance: FLUTICASONE FUROATE\VILANTEROL TRIFENATATE
     Indication: Asthma
     Dosage: UNK
  20. ESOMEPRAZOLE. [Concomitant]
     Active Substance: ESOMEPRAZOLE MAGNESIUM
     Indication: Gastrooesophageal reflux disease
     Dosage: UNK
     Route: 048
  21. FEBUXOSTAT [Concomitant]
     Active Substance: FEBUXOSTAT
     Indication: Prophylaxis
     Dosage: UNK
     Route: 048
     Dates: start: 20180908, end: 20190731
  22. MAGNESIUM OXIDE [Concomitant]
     Active Substance: MAGNESIUM OXIDE
     Indication: Constipation
     Dosage: UNK
     Route: 048
  23. URSODIOL [Concomitant]
     Active Substance: URSODIOL
     Indication: Product used for unknown indication
     Dosage: UNK
     Route: 048
     Dates: start: 20180909, end: 20190925
  24. POTASSIUM CHLORIDE [Concomitant]
     Active Substance: POTASSIUM CHLORIDE
     Indication: Hypokalaemia
     Dosage: UNK
     Route: 048
     Dates: start: 20180914, end: 20190907
  25. SENNOSIDES A AND B [Concomitant]
     Active Substance: SENNOSIDES A AND B
     Indication: Constipation
     Dosage: UNK
     Route: 048
     Dates: start: 20180914
  26. CEFEPIME [Concomitant]
     Active Substance: CEFEPIME HYDROCHLORIDE
     Indication: Febrile neutropenia
     Dosage: UNK
     Route: 041
     Dates: start: 20180907, end: 20180919
  27. LEVOFLOXACIN [Concomitant]
     Active Substance: LEVOFLOXACIN
     Indication: Febrile neutropenia
     Dosage: UNK
     Route: 048
     Dates: start: 20180920, end: 20181009
  28. DANAPAROID [Concomitant]
     Active Substance: DANAPAROID
     Indication: Disseminated intravascular coagulation
     Dosage: UNK
     Route: 042
     Dates: start: 20180909, end: 20180926
  29. CHLORPHENIRAMINE [Concomitant]
     Active Substance: CHLORPHENIRAMINE
     Indication: Product used for unknown indication
     Dosage: UNK
     Route: 042
     Dates: start: 20180910, end: 20181010
  30. FUROSEMIDE [Concomitant]
     Active Substance: FUROSEMIDE
     Indication: Oedema
     Dosage: UNK
     Route: 042
     Dates: start: 20180911, end: 20180926
  31. FUROSEMIDE [Concomitant]
     Active Substance: FUROSEMIDE
     Indication: Polyuria
  32. CANRENOATE POTASSIUM [Concomitant]
     Active Substance: CANRENOATE POTASSIUM
     Indication: Oedema
     Dosage: UNK
     Route: 042
     Dates: start: 20180916, end: 20180916
  33. CANRENOATE POTASSIUM [Concomitant]
     Active Substance: CANRENOATE POTASSIUM
     Indication: Polyuria
  34. MICAFUNGIN. [Concomitant]
     Active Substance: MICAFUNGIN SODIUM
     Indication: Febrile neutropenia
     Dosage: UNK
     Route: 041
     Dates: start: 20180913, end: 20181015
  35. GRANISETRON [Concomitant]
     Active Substance: GRANISETRON
     Indication: Prophylaxis of nausea and vomiting
     Dosage: UNK
     Route: 041
     Dates: start: 20180918, end: 20180918

REACTIONS (1)
  - Platelet count decreased [Recovered/Resolved]

NARRATIVE: CASE EVENT DATE: 20180901
